FAERS Safety Report 14641413 (Version 2)
Quarter: 2018Q1

REPORT INFORMATION
  Report Type: Spontaneous
  Country: US (occurrence: US)
  Receive Date: 20180315
  Receipt Date: 20180328
  Transmission Date: 20180509
  Serious: No
  Sender: FDA-Public Use
  Company Number: US-PFIZER INC-2018011047

PATIENT
  Age: 63 Year
  Sex: Female
  Weight: 52.16 kg

DRUGS (9)
  1. ESCITALOPRAM OXALATE. [Concomitant]
     Active Substance: ESCITALOPRAM OXALATE
     Indication: BIPOLAR DISORDER
     Dosage: 2.5 MG, 1X/DAY (EVERY MORNING)
     Route: 048
  2. XANAX XR [Suspect]
     Active Substance: ALPRAZOLAM
     Indication: PANIC ATTACK
     Dosage: 0.5 MG, 1X/DAY(AT NIGHT)
     Route: 048
  3. XANAX XR [Suspect]
     Active Substance: ALPRAZOLAM
     Indication: ANXIETY
     Dosage: 1.5 MG, DAILY (1 MG PILL IN THE MORNING WITH BREAKFAST, THEN 0.5 MG PILL BY MOUTH AFTER DINNER)
     Route: 048
  4. XANAX XR [Suspect]
     Active Substance: ALPRAZOLAM
     Dosage: 1.5 MG, DIALY (1MG IN THE MORNING AND 0.5 MG IN THE EVENING)
  5. RELPAX [Concomitant]
     Active Substance: ELETRIPTAN HYDROBROMIDE
     Dosage: 40 MG, AS NEEDED (ONCE BY MOUTH )
     Route: 048
     Dates: start: 2006
  6. XANAX XR [Suspect]
     Active Substance: ALPRAZOLAM
     Dosage: 0.5 MG, 2X/DAY (IN MORNING AND IN NIGHT)
     Route: 048
  7. XANAX XR [Suspect]
     Active Substance: ALPRAZOLAM
     Indication: BIPOLAR DISORDER
     Dosage: 1 MG, 1X/DAY
     Route: 048
  8. RELPAX [Concomitant]
     Active Substance: ELETRIPTAN HYDROBROMIDE
     Indication: MIGRAINE
     Dosage: UNK, DAILY (1-2 PILLS IN A 24 HOUR PERIOD)
     Route: 048
  9. LOTRONEX [Concomitant]
     Active Substance: ALOSETRON HYDROCHLORIDE
     Indication: IRRITABLE BOWEL SYNDROME
     Dosage: 0.5 MG, (THREE TIMES A WEEK)
     Route: 048

REACTIONS (2)
  - Off label use [Not Recovered/Not Resolved]
  - Drug effect incomplete [Unknown]
